FAERS Safety Report 7920141-1 (Version None)
Quarter: 2011Q4

REPORT INFORMATION
  Report Type: 
  Country: None (occurrence: None)
  Receive Date: 20111117
  Receipt Date: 20111108
  Transmission Date: 20120403
  Serious: Yes (Other)
  Sender: FDA-Public Use
  Company Number: CA-JNJFOC-20111104368

PATIENT
  Sex: Female
  Weight: 48.5 kg

DRUGS (12)
  1. FOLIC ACID [Concomitant]
     Route: 048
  2. VITAMIN D [Concomitant]
     Dosage: 3 PILLS
     Route: 048
  3. VITAMIN B-12 [Concomitant]
     Route: 065
  4. ZANTAC [Concomitant]
     Route: 048
  5. MORPHINE SULFATE [Concomitant]
     Dosage: 1/2 TO 1 Q 4 HOUR OR PRN
     Route: 065
  6. FERROUS GLUCONATE [Concomitant]
     Route: 048
  7. REMICADE [Suspect]
     Indication: CROHN'S DISEASE
     Route: 042
  8. ENTOCORT EC [Concomitant]
     Dosage: 3 PILLS A DAY
     Route: 065
  9. CALCIUM [Concomitant]
     Route: 048
  10. M.V.I. [Concomitant]
     Route: 048
  11. PENTASA [Concomitant]
     Dosage: 8 PILLS
     Route: 065
  12. ACTONEL [Concomitant]
     Route: 065

REACTIONS (1)
  - ABDOMINAL HERNIA [None]
